FAERS Safety Report 7423573-3 (Version None)
Quarter: 2011Q2

REPORT INFORMATION
  Report Type: 
  Country: None (occurrence: None)
  Receive Date: 20110413
  Receipt Date: 20110413
  Transmission Date: 20111010
  Serious: Yes (Hospitalization)
  Sender: FDA-Public Use
  Company Number: None

PATIENT
  Age: 46 Year
  Sex: Female
  Weight: 48.2 kg

DRUGS (1)
  1. CISPLATIN [Suspect]
     Dosage: 89 MG EVERY DAY IV 59 MG ONCE IV
     Route: 042
     Dates: start: 20101022, end: 20101023

REACTIONS (1)
  - FEBRILE NEUTROPENIA [None]
